FAERS Safety Report 4325832-X (Version None)
Quarter: 2004Q1

REPORT INFORMATION
  Report Type: 
  Country: None (occurrence: None)
  Receive Date: 20040329
  Receipt Date: 20040322
  Transmission Date: 20041129
  Serious: Yes (Death, Hospitalization)
  Sender: FDA-Public Use
  Company Number: JP-ROCHE-362261

PATIENT
  Sex: Male

DRUGS (5)
  1. PANALDINE [Suspect]
     Indication: ATRIAL FIBRILLATION
     Route: 048
     Dates: start: 20031015, end: 20040216
  2. IRESSA [Suspect]
     Indication: NON-SMALL CELL LUNG CANCER
     Route: 048
     Dates: start: 20031015
  3. DIGITALIS [Suspect]
     Dosage: DRUG REPORTED AS DIGITALIS PURPUREA
     Route: 065
  4. CISPLATIN [Concomitant]
     Dates: start: 20000615
  5. FILDESIN [Concomitant]
     Dates: start: 20000615

REACTIONS (2)
  - LEUKOPENIA [None]
  - PNEUMONIA [None]
